FAERS Safety Report 6533557-5 (Version None)
Quarter: 2010Q1

REPORT INFORMATION
  Report Type: 
  Country: None (occurrence: None)
  Receive Date: 20100108
  Receipt Date: 20100108
  Transmission Date: 20100710
  Serious: Yes (Other)
  Sender: FDA-Public Use
  Company Number: None

PATIENT
  Age: 39 Year
  Sex: Female
  Weight: 54.4316 kg

DRUGS (1)
  1. ZICAM GEL [Suspect]
     Indication: NASOPHARYNGITIS
     Dates: start: 20090220, end: 20090220

REACTIONS (2)
  - ANOSMIA [None]
  - BURNING SENSATION [None]
